FAERS Safety Report 18417045 (Version 1)
Quarter: 2020Q4

REPORT INFORMATION
  Report Type: Spontaneous
  Country: US (occurrence: US)
  Receive Date: 20201022
  Receipt Date: 20201022
  Transmission Date: 20210114
  Serious: Yes (Other)
  Sender: FDA-Public Use
  Company Number: US-TEVA-2020-US-1839620

PATIENT
  Age: 76 Year
  Sex: Female

DRUGS (16)
  1. GEMCITABINE. [Suspect]
     Active Substance: GEMCITABINE
     Indication: METASTASES TO PELVIS
  2. IRINOTECAN [Suspect]
     Active Substance: IRINOTECAN
     Indication: DUCTAL ADENOCARCINOMA OF PANCREAS
     Dosage: PART OF SYSTEMIC PALLIATIVE CHEMOTHERAPY FOLFIRINOX
     Route: 065
  3. IRINOTECAN [Suspect]
     Active Substance: IRINOTECAN
     Indication: METASTASES TO PELVIS
  4. NAB PACLITAXEL [Suspect]
     Active Substance: PACLITAXEL
     Indication: METASTASES TO PELVIS
  5. ERLOTINIB [Suspect]
     Active Substance: ERLOTINIB
     Indication: METASTASES TO PELVIS
  6. NAB PACLITAXEL [Suspect]
     Active Substance: PACLITAXEL
     Indication: DUCTAL ADENOCARCINOMA OF PANCREAS
     Route: 065
  7. OSIMERTINIB. [Suspect]
     Active Substance: OSIMERTINIB
     Indication: METASTASES TO PELVIS
  8. LEUCOVORIN. [Suspect]
     Active Substance: LEUCOVORIN
     Indication: DUCTAL ADENOCARCINOMA OF PANCREAS
     Dosage: PART OF SYSTEMIC PALLIATIVE CHEMOTHERAPY FOLFIRINOX
     Route: 065
  9. OXALIPLATIN. [Suspect]
     Active Substance: OXALIPLATIN
     Indication: METASTASES TO PELVIS
  10. OXALIPLATIN. [Suspect]
     Active Substance: OXALIPLATIN
     Indication: DUCTAL ADENOCARCINOMA OF PANCREAS
     Dosage: PART OF SYSTEMIC PALLIATIVE CHEMOTHERAPY FOLFIRINOX
     Route: 065
  11. ERLOTINIB [Suspect]
     Active Substance: ERLOTINIB
     Indication: DUCTAL ADENOCARCINOMA OF PANCREAS
     Dosage: 75 MILLIGRAM DAILY;
     Route: 065
  12. OSIMERTINIB. [Suspect]
     Active Substance: OSIMERTINIB
     Indication: DUCTAL ADENOCARCINOMA OF PANCREAS
     Route: 065
  13. FLUOROURACIL. [Suspect]
     Active Substance: FLUOROURACIL
     Indication: DUCTAL ADENOCARCINOMA OF PANCREAS
     Dosage: PART OF SYSTEMIC PALLIATIVE CHEMOTHERAPY FOLFIRINOX
     Route: 065
  14. FLUOROURACIL. [Suspect]
     Active Substance: FLUOROURACIL
     Indication: METASTASES TO PELVIS
  15. LEUCOVORIN. [Suspect]
     Active Substance: LEUCOVORIN
     Indication: METASTASES TO PELVIS
  16. GEMCITABINE. [Suspect]
     Active Substance: GEMCITABINE
     Indication: DUCTAL ADENOCARCINOMA OF PANCREAS
     Route: 065

REACTIONS (5)
  - Myelosuppression [Unknown]
  - Drug resistance [Unknown]
  - Diarrhoea [Unknown]
  - Thrombocytopenia [Unknown]
  - Off label use [Unknown]
